FAERS Safety Report 25043952 (Version 1)
Quarter: 2025Q1

REPORT INFORMATION
  Report Type: Spontaneous
  Country: CA (occurrence: CA)
  Receive Date: 20250306
  Receipt Date: 20250306
  Transmission Date: 20250408
  Serious: Yes (Hospitalization, Other)
  Sender: CSL BEHRING
  Company Number: CA-BEH-2025197294

PATIENT
  Age: 72 Year
  Sex: Female
  Weight: 76 kg

DRUGS (1)
  1. PRIVIGEN [Suspect]
     Active Substance: HUMAN IMMUNOGLOBULIN G
     Indication: Secondary immunodeficiency
     Route: 042

REACTIONS (24)
  - Acute myocardial infarction [Recovering/Resolving]
  - Arterial disorder [Recovering/Resolving]
  - Blood pressure increased [Recovering/Resolving]
  - Blood pressure systolic decreased [Recovering/Resolving]
  - Bundle branch block right [Recovering/Resolving]
  - Cardiac failure [Recovering/Resolving]
  - Cardiomyopathy [Recovering/Resolving]
  - Chest discomfort [Recovering/Resolving]
  - Diastolic dysfunction [Recovering/Resolving]
  - Drug intolerance [Recovering/Resolving]
  - Dyspnoea [Recovering/Resolving]
  - Ejection fraction decreased [Recovering/Resolving]
  - Electrocardiogram ST segment depression [Recovering/Resolving]
  - Heart rate increased [Recovering/Resolving]
  - Kounis syndrome [Recovering/Resolving]
  - Left ventricular dysfunction [Recovering/Resolving]
  - Left ventricular end-diastolic pressure increased [Recovering/Resolving]
  - Loss of consciousness [Recovering/Resolving]
  - Oxygen saturation decreased [Recovering/Resolving]
  - Syncope [Recovering/Resolving]
  - Transfusion reaction [Recovering/Resolving]
  - Troponin increased [Recovering/Resolving]
  - Vomiting [Recovering/Resolving]
  - Wall motion score index abnormal [Recovering/Resolving]
